FAERS Safety Report 13362203 (Version 3)
Quarter: 2017Q2

REPORT INFORMATION
  Report Type: Spontaneous
  Country: US (occurrence: US)
  Receive Date: 20170323
  Receipt Date: 20170428
  Transmission Date: 20170830
  Serious: No
  Sender: FDA-Public Use
  Company Number: US-GLAXOSMITHKLINE-US2017GSK039873

PATIENT
  Sex: Female

DRUGS (38)
  1. ZANTAC [Suspect]
     Active Substance: RANITIDINE HYDROCHLORIDE
     Indication: PETECHIAE
  2. STADOL [Concomitant]
     Active Substance: BUTORPHANOL TARTRATE
  3. LIDOCAINE. [Concomitant]
     Active Substance: LIDOCAINE
  4. PHENERGAN [Concomitant]
     Active Substance: PROMETHAZINE HYDROCHLORIDE
  5. ZANTAC [Suspect]
     Active Substance: RANITIDINE HYDROCHLORIDE
     Indication: URTICARIA
  6. BENADRYL [Suspect]
     Active Substance: DIPHENHYDRAMINE HYDROCHLORIDE
     Indication: PERIPHERAL SWELLING
     Dosage: UNK, U
  7. ATENOLOL. [Concomitant]
     Active Substance: ATENOLOL
  8. TRINTELLIX [Concomitant]
     Active Substance: VORTIOXETINE HYDROBROMIDE
  9. ZOFRAN [Concomitant]
     Active Substance: ONDANSETRON HYDROCHLORIDE
  10. IMITREX [Suspect]
     Active Substance: SUMATRIPTAN SUCCINATE
     Indication: PRODUCT USED FOR UNKNOWN INDICATION
     Dosage: UNK
     Route: 048
  11. IMITREX [Suspect]
     Active Substance: SUMATRIPTAN SUCCINATE
     Indication: PRODUCT USED FOR UNKNOWN INDICATION
     Dosage: UNK, U
  12. CLARITIN [Suspect]
     Active Substance: LORATADINE
     Indication: PERIPHERAL SWELLING
     Dosage: UNK, U
     Route: 048
  13. FENTANYL. [Concomitant]
     Active Substance: FENTANYL
  14. XANAX [Concomitant]
     Active Substance: ALPRAZOLAM
  15. ZANTAC [Suspect]
     Active Substance: RANITIDINE HYDROCHLORIDE
     Indication: PERIPHERAL SWELLING
     Dosage: UNK, U
  16. ZANAFLEX [Concomitant]
     Active Substance: TIZANIDINE HYDROCHLORIDE
  17. ALBUTEROL SULFATE. [Concomitant]
     Active Substance: ALBUTEROL SULFATE
  18. ZYRTEC [Suspect]
     Active Substance: CETIRIZINE HYDROCHLORIDE
     Indication: SKIN FISSURES
  19. POTASSIUM CHLORIDE. [Concomitant]
     Active Substance: POTASSIUM CHLORIDE
  20. NYSTATIN. [Concomitant]
     Active Substance: NYSTATIN
  21. ZANTAC [Suspect]
     Active Substance: RANITIDINE HYDROCHLORIDE
     Indication: SKIN FISSURES
  22. ZYRTEC [Suspect]
     Active Substance: CETIRIZINE HYDROCHLORIDE
     Indication: PERIPHERAL SWELLING
     Dosage: UNK, U
  23. CLARITIN [Suspect]
     Active Substance: LORATADINE
     Indication: PETECHIAE
  24. DICLOFENAC SODIUM. [Concomitant]
     Active Substance: DICLOFENAC SODIUM
  25. INDOCIN [Concomitant]
     Active Substance: INDOMETHACIN
  26. MAXZIDE [Concomitant]
     Active Substance: HYDROCHLOROTHIAZIDE\TRIAMTERENE
  27. GABAPENTIN. [Concomitant]
     Active Substance: GABAPENTIN
  28. ZYRTEC [Suspect]
     Active Substance: CETIRIZINE HYDROCHLORIDE
     Indication: PETECHIAE
  29. CLARITIN [Suspect]
     Active Substance: LORATADINE
     Indication: SKIN FISSURES
  30. CLARITIN [Suspect]
     Active Substance: LORATADINE
     Indication: URTICARIA
  31. BENADRYL [Suspect]
     Active Substance: DIPHENHYDRAMINE HYDROCHLORIDE
     Indication: SKIN FISSURES
  32. BENADRYL [Suspect]
     Active Substance: DIPHENHYDRAMINE HYDROCHLORIDE
     Indication: PETECHIAE
  33. ZYRTEC [Suspect]
     Active Substance: CETIRIZINE HYDROCHLORIDE
     Indication: URTICARIA
  34. BENADRYL [Suspect]
     Active Substance: DIPHENHYDRAMINE HYDROCHLORIDE
     Indication: URTICARIA
  35. VITAMIN D3 [Concomitant]
     Active Substance: CHOLECALCIFEROL
  36. TROKENDI [Concomitant]
     Active Substance: TOPIRAMATE
  37. RELPAX [Concomitant]
     Active Substance: ELETRIPTAN HYDROBROMIDE
  38. NEXIUM [Concomitant]
     Active Substance: ESOMEPRAZOLE MAGNESIUM

REACTIONS (6)
  - Adverse drug reaction [Unknown]
  - Drug intolerance [Unknown]
  - Nausea [Unknown]
  - Drug ineffective [Unknown]
  - Flushing [Unknown]
  - Drug hypersensitivity [Unknown]
